FAERS Safety Report 7728383-5 (Version None)
Quarter: 2011Q3

REPORT INFORMATION
  Report Type: 
  Country: None (occurrence: None)
  Receive Date: 20110905
  Receipt Date: 20110825
  Transmission Date: 20111222
  Serious: Yes (Other)
  Sender: FDA-Public Use
  Company Number: PHHY2011MX76620

PATIENT
  Sex: Male

DRUGS (2)
  1. OSCAL [Concomitant]
     Dosage: UNK UKN, UNK
     Route: 042
  2. ZOLEDRONOC ACID [Suspect]
     Indication: OSTEOPOROSIS
     Dosage: 5 MG, UNK
     Dates: start: 20110801

REACTIONS (2)
  - FEEDING DISORDER [None]
  - TOOTHACHE [None]
